FAERS Safety Report 5590554-4 (Version None)
Quarter: 2008Q1

REPORT INFORMATION
  Report Type: 
  Country: None (occurrence: None)
  Receive Date: 20080110
  Receipt Date: 20071226
  Transmission Date: 20080703
  Serious: Yes (Death, Hospitalization)
  Sender: FDA-Public Use
  Company Number: 2007-05987

PATIENT
  Age: 69 Year
  Sex: Male
  Weight: 68 kg

DRUGS (5)
  1. FUROSEMIDE [Suspect]
     Indication: CARDIAC FAILURE CONGESTIVE
     Dosage: ORAL
     Route: 048
     Dates: start: 20000101, end: 20070915
  2. AMBIEN [Suspect]
     Indication: SLEEP DISORDER
     Dosage: ORAL
     Route: 048
     Dates: start: 20070827, end: 20070827
  3. NAPROSYN [Suspect]
     Indication: ARTHRITIS
     Dosage: ORAL
     Route: 048
     Dates: start: 20040101, end: 20070915
  4. COLCHICINE (WESTWARD)(COLCHICINE) [Suspect]
     Indication: ARTHRITIS
     Dosage: ORAL
     Route: 048
     Dates: start: 20040101, end: 20070915
  5. PLAVIX [Suspect]
     Indication: CARDIAC FAILURE CONGESTIVE
     Dosage: ORAL
     Route: 048

REACTIONS (13)
  - ABNORMAL BEHAVIOUR [None]
  - CARDIAC FAILURE CONGESTIVE [None]
  - CONTUSION [None]
  - DEHYDRATION [None]
  - DISORIENTATION [None]
  - DRUG INEFFECTIVE [None]
  - FALL [None]
  - HALLUCINATION [None]
  - ILL-DEFINED DISORDER [None]
  - INTERNAL INJURY [None]
  - INTESTINAL PERFORATION [None]
  - PERICARDIAL EFFUSION [None]
  - RENAL DISORDER [None]
